FAERS Safety Report 11145456 (Version 1)
Quarter: 2015Q2

REPORT INFORMATION
  Report Type: Spontaneous
  Country: DK (occurrence: DK)
  Receive Date: 20150528
  Receipt Date: 20150528
  Transmission Date: 20150821
  Serious: Yes (Hospitalization)
  Sender: FDA-Public Use
  Company Number: DK-SA-2015SA049982

PATIENT
  Age: 46 Year
  Sex: Female
  Weight: 80 kg

DRUGS (7)
  1. PLENADREN [Concomitant]
     Active Substance: HYDROCORTISONE
     Indication: ADRENAL INSUFFICIENCY
  2. VESICARE [Concomitant]
     Active Substance: SOLIFENACIN SUCCINATE
     Indication: INCONTINENCE
     Dates: start: 2013
  3. SOLU-CORTEF [Concomitant]
     Active Substance: HYDROCORTISONE SODIUM SUCCINATE
     Indication: ADRENAL INSUFFICIENCY
  4. AUBAGIO [Suspect]
     Active Substance: TERIFLUNOMIDE
     Indication: MULTIPLE SCLEROSIS
     Dosage: STYRKE: 14 MG
     Route: 048
     Dates: start: 20140225, end: 20150505
  5. ZOVIR [Concomitant]
     Active Substance: ACYCLOVIR
     Indication: ADRENAL INSUFFICIENCY
     Dates: start: 1997
  6. KODEIN ALTERNOVA [Concomitant]
     Indication: PAIN
  7. GABAPENTIN. [Concomitant]
     Active Substance: GABAPENTIN
     Indication: PAIN

REACTIONS (5)
  - Menstrual disorder [Not Recovered/Not Resolved]
  - Abdominal pain lower [Unknown]
  - Dermatitis atopic [Not Recovered/Not Resolved]
  - Dehydration [Unknown]
  - Diarrhoea [Not Recovered/Not Resolved]

NARRATIVE: CASE EVENT DATE: 201402
